FAERS Safety Report 9508076 (Version 1)
Quarter: 2013Q1

REPORT INFORMATION
  Report Type: Spontaneous
  Country: US (occurrence: None)
  Receive Date: 20130305
  Receipt Date: 20130305
  Transmission Date: 20140127
  Serious: Yes (Other)
  Sender: FDA-Public Use
  Company Number: 163-21880-12030444

PATIENT
  Age: 48 Year
  Sex: Male

DRUGS (7)
  1. REVLIMID [Suspect]
     Indication: MANTLE CELL LYMPHOMA
     Route: 048
     Dates: start: 20120220, end: 2012
  2. FLUCONAZOLE (FLUCONAZOLE) [Concomitant]
  3. TAMSULOSIS HCL (TAMSULOSIN HYDROCHLORIDE) [Concomitant]
  4. ALLOPURINOL [Concomitant]
  5. PANTOPRAZOLE SODIUM (PANTOPRAZOLE SODIUM) [Concomitant]
  6. SMZ-TMP DS (BACTRIM) [Concomitant]
  7. PREDNISONE (PREDNISONE) [Concomitant]

REACTIONS (2)
  - Pancytopenia [None]
  - Staphylococcal infection [None]
